FAERS Safety Report 4340390-1 (Version None)
Quarter: 2004Q2

REPORT INFORMATION
  Report Type: 
  Country: None (occurrence: None)
  Receive Date: 20040414
  Receipt Date: 20040401
  Transmission Date: 20050107
  Serious: Yes (Hospitalization, Other)
  Sender: FDA-Public Use
  Company Number: 001-0981-M0005648

PATIENT
  Age: 48 Year
  Sex: Female
  Weight: 77.1115 kg

DRUGS (7)
  1. LIPITOR [Suspect]
     Indication: HYPERLIPIDAEMIA
     Dosage: 10 MG (DAILY)
     Dates: start: 19971205, end: 19971224
  2. ZOLOFT [Suspect]
     Indication: ILL-DEFINED DISORDER
     Dates: start: 19960101
  3. SALBUTAMOL (SALBUTAMOL) [Suspect]
     Indication: RESPIRATORY TRACT CONGESTION
     Dosage: INHALATION
     Route: 055
     Dates: start: 19980102
  4. PROPRANOLOL HCL [Concomitant]
  5. CLARITHROMYCIN [Concomitant]
  6. IPRATROPOUM BROMIDE (IPRATROPIUM BROMIDE) [Concomitant]
  7. CIPROFLOXACIN [Concomitant]

REACTIONS (15)
  - BILIARY TRACT DISORDER [None]
  - BRONCHITIS [None]
  - GENERAL PHYSICAL HEALTH DETERIORATION [None]
  - HEPATIC FAILURE [None]
  - HEPATIC NECROSIS [None]
  - HEPATIC NEOPLASM [None]
  - HEPATITIS [None]
  - HEPATITIS FULMINANT [None]
  - INFLUENZA [None]
  - LIVER TRANSPLANT [None]
  - NASOPHARYNGITIS [None]
  - PNEUMONIA [None]
  - RESPIRATORY TRACT CONGESTION [None]
  - SYNCOPE VASOVAGAL [None]
  - VIRAL INFECTION [None]
